FAERS Safety Report 7052500-6 (Version None)
Quarter: 2010Q4

REPORT INFORMATION
  Report Type: 
  Country: None (occurrence: None)
  Receive Date: 20101019
  Receipt Date: 20101013
  Transmission Date: 20110411
  Serious: Yes (Hospitalization)
  Sender: FDA-Public Use
  Company Number: FR-PFIZER INC-2010129710

PATIENT
  Age: 81 Year
  Sex: Male

DRUGS (11)
  1. INSPRA [Suspect]
     Dosage: 12.5 MG, 1X/DAY
     Route: 048
  2. NEXIUM [Suspect]
     Dosage: 40 MG, 1X/DAY
     Route: 048
  3. TRIATEC [Suspect]
     Dosage: 1.25 MG, 1X/DAY
     Route: 048
  4. KREDEX [Suspect]
     Dosage: 3.125 MG, 2X/DAY
     Route: 048
  5. KARDEGIC [Suspect]
     Dosage: 75 MG, 1X/DAY
     Route: 048
  6. LASIX [Suspect]
     Dosage: 20 MG, 1X/DAY
     Route: 048
  7. RISPERDAL [Suspect]
     Dosage: 0.5 MG, 1X/DAY
     Route: 048
  8. ELISOR [Suspect]
     Dosage: 40 MG, 1X/DAY
     Route: 048
  9. OMACOR [Suspect]
     Dosage: 1 DF, 1X/DAY, ON MORNING
     Route: 048
  10. LEVOTHYROXINE SODIUM [Suspect]
     Dosage: 25 UG, 1X/DAY
     Route: 048
  11. CETORNAN [Suspect]
     Dosage: 5 G, 2X/DAY
     Route: 048

REACTIONS (1)
  - THROMBOCYTOPENIA [None]
